FAERS Safety Report 7193218-9 (Version None)
Quarter: 2010Q4

REPORT INFORMATION
  Report Type: 
  Country: None (occurrence: None)
  Receive Date: 20101223
  Receipt Date: 20100901
  Transmission Date: 20110411
  Serious: No
  Sender: FDA-Public Use
  Company Number: US-AMGEN-KDL435551

PATIENT

DRUGS (1)
  1. ENBREL [Suspect]
     Indication: PSORIASIS
     Dosage: 50 MG, QWK
     Route: 058
     Dates: start: 20100825

REACTIONS (7)
  - EAR DISCOMFORT [None]
  - ERYTHEMA [None]
  - EYE SWELLING [None]
  - HEADACHE [None]
  - LYMPHADENOPATHY [None]
  - PSORIASIS [None]
  - SWELLING FACE [None]
